FAERS Safety Report 9253646 (Version 1)
Quarter: 2013Q2

REPORT INFORMATION
  Report Type: Spontaneous
  Country: US (occurrence: US)
  Receive Date: 20130425
  Receipt Date: 20130425
  Transmission Date: 20140414
  Serious: No
  Sender: FDA-Public Use
  Company Number: US-009507513-1304USA014484

PATIENT
  Sex: Male

DRUGS (3)
  1. PEGINTRON [Suspect]
     Indication: HEPATITIS C
     Dosage: 150 MG, QW
     Route: 058
     Dates: start: 201302
  2. RIBASPHERE [Suspect]
     Dosage: 600 MG, BID
  3. TELAPREVIR [Suspect]
     Dosage: 750 MG, TID

REACTIONS (2)
  - Rash generalised [Unknown]
  - Sinusitis [Unknown]
